FAERS Safety Report 4459946-0 (Version None)
Quarter: 2004Q3

REPORT INFORMATION
  Report Type: 
  Country: None (occurrence: None)
  Receive Date: 20040928
  Receipt Date: 20030911
  Transmission Date: 20050211
  Serious: No
  Sender: FDA-Public Use
  Company Number: US-GLAXOSMITHKLINE-A0425509A

PATIENT
  Age: 53 Year
  Sex: Male

DRUGS (1)
  1. SEREVENT [Suspect]
     Dosage: 1PUFF TWICE PER DAY
     Route: 055
     Dates: start: 20030801, end: 20030908

REACTIONS (3)
  - BRONCHITIS [None]
  - ORAL PAIN [None]
  - PHARYNGOLARYNGEAL PAIN [None]
